FAERS Safety Report 6785851-0 (Version None)
Quarter: 2010Q2

REPORT INFORMATION
  Report Type: 
  Country: None (occurrence: None)
  Receive Date: 20100621
  Receipt Date: 20100621
  Transmission Date: 20101027
  Serious: No
  Sender: FDA-Public Use
  Company Number: None

PATIENT
  Sex: Male

DRUGS (2)
  1. PREVACID [Suspect]
     Indication: GASTROOESOPHAGEAL REFLUX DISEASE
     Dosage: PREVACID 30MG 2 DAILY ORAL
     Route: 048
     Dates: start: 20090303, end: 20100617
  2. PREVACID [Suspect]
     Indication: OESOPHAGITIS
     Dosage: PREVACID 30MG 2 DAILY ORAL
     Route: 048
     Dates: start: 20090303, end: 20100617

REACTIONS (3)
  - DRUG INEFFECTIVE [None]
  - GASTROOESOPHAGEAL REFLUX DISEASE [None]
  - NAUSEA [None]
